FAERS Safety Report 8168832-4 (Version None)
Quarter: 2012Q1

REPORT INFORMATION
  Report Type: 
  Country: None (occurrence: None)
  Receive Date: 20120227
  Receipt Date: 20120209
  Transmission Date: 20120608
  Serious: Yes (Other)
  Sender: FDA-Public Use
  Company Number: CHPA2012US003044

PATIENT
  Age: 63 Year
  Sex: Female

DRUGS (3)
  1. FERROUS SULFATE TAB [Suspect]
     Indication: BLOOD IRON DECREASED
     Dosage: 1 DF, A DAY
     Route: 048
  2. METHADONE HCL [Concomitant]
     Dosage: UNK, UNK
  3. NORCO [Concomitant]
     Dosage: UNK, UNK

REACTIONS (1)
  - RHEUMATOID ARTHRITIS [None]
